FAERS Safety Report 15023821 (Version 1)
Quarter: 2018Q2

REPORT INFORMATION
  Report Type: Spontaneous
  Country: US (occurrence: US)
  Receive Date: 20180525
  Receipt Date: 20180525
  Transmission Date: 20180711
  Serious: Yes (Death)
  Sender: FDA-Public Use
  Company Number: None

PATIENT
  Age: 60 Year
  Sex: Male
  Weight: 71.21 kg

DRUGS (1)
  1. TENOFOVIR, 300 MG [Suspect]
     Active Substance: TENOFOVIR
     Indication: HEPATITIS B
     Route: 048
     Dates: start: 20180301, end: 20180524

REACTIONS (1)
  - Death [None]

NARRATIVE: CASE EVENT DATE: 20180524
